FAERS Safety Report 9630734 (Version 1)
Quarter: 2013Q4

REPORT INFORMATION
  Report Type: Spontaneous
  Country: US (occurrence: US)
  Receive Date: 20131018
  Receipt Date: 20131018
  Transmission Date: 20140711
  Serious: Yes (Other)
  Sender: FDA-Public Use
  Company Number: US-ACCORD-019939

PATIENT
  Age: 16 Year
  Sex: Female

DRUGS (3)
  1. MONTELUKAST [Suspect]
     Indication: RHINITIS ALLERGIC
  2. FLUTICASONE PROPIONATE W/SALMETEROL [Concomitant]
     Indication: ASTHMA
     Dosage: 250/50 MCG
  3. ALBUTEROL SULFATE [Concomitant]
     Indication: ASTHMA

REACTIONS (1)
  - Parasomnia [Recovered/Resolved]
